FAERS Safety Report 12726810 (Version 3)
Quarter: 2018Q2

REPORT INFORMATION
  Report Type: Spontaneous
  Country: US (occurrence: US)
  Receive Date: 20160908
  Receipt Date: 20180629
  Transmission Date: 20180711
  Serious: No
  Sender: FDA-Public Use
  Company Number: US-ACTELION-A-NJ2016-141975

PATIENT
  Age: 59 Year
  Sex: Female
  Weight: 90.7 kg

DRUGS (1)
  1. OPSUMIT [Suspect]
     Active Substance: MACITENTAN
     Indication: PULMONARY HYPERTENSION
     Dosage: 10 MG, UNK
     Route: 048
     Dates: start: 20150311

REACTIONS (4)
  - Nasopharyngitis [Unknown]
  - Dyspnoea exertional [Unknown]
  - Respiratory tract infection [Unknown]
  - Dyspnoea [Unknown]
